FAERS Safety Report 10955731 (Version 4)
Quarter: 2015Q3

REPORT INFORMATION
  Report Type: Spontaneous
  Country: US (occurrence: None)
  Receive Date: 20150324
  Receipt Date: 20150806
  Transmission Date: 20151125
  Serious: Yes (Hospitalization)
  Sender: FDA-Public Use
  Company Number: DSU-2014-103707

PATIENT
  Age: 74 Year
  Sex: Female
  Weight: 110.2 kg

DRUGS (13)
  1. BENICAR [Suspect]
     Active Substance: OLMESARTAN MEDOXOMIL
     Indication: HYPERTENSION
     Route: 048
     Dates: start: 2007
  2. MECLIZINE (MECLOZINE) [Concomitant]
  3. DIPHENOXYLATE HCL AND ATROPINE SULFATE (ATROPINE SULFATE, DIPHENOXYLATE HYDROCHLORIDE) [Concomitant]
  4. MULTIVITAMIN (ASCORBIC ACID, CALCIUM PANTOTHENATE, ERGOCALCIFEROL, NICOTINAMIDE, PYRIDOXINE HYDROCHLORIDE, RETINOL, RIBOFLAVIN, THIAMINE HYDROCHLORIDE) [Concomitant]
  5. VITAMIN D WITH OMEGA 3 (COLECALCIFEROL, FISH OIL) [Concomitant]
  6. TUMS (CALCIUM CARBONATE, MAGNESIUM CARBONATE, MAGNESIUM TRISILICATE) [Concomitant]
  7. FOLBEE (CYANOCOBALAMIN, FOLIC ACID, PYRIDOXINE HYDROCHLORIDE) [Concomitant]
     Active Substance: CYANOCOBALAMIN\FOLIC ACID\PYRIDOXINE HYDROCHLORIDE
  8. QUESTRAN (COLESTYRAMINE) [Concomitant]
  9. METFORMIN [Concomitant]
     Active Substance: METFORMIN HYDROCHLORIDE
  10. ACEBUTOLOL [Concomitant]
     Active Substance: ACEBUTOLOL
  11. MAXZIDE (HYDROCHLOROTHIAZIDE, TRIAMTERENE) [Concomitant]
  12. ASPIRIN (ACETYLSALICYLIC ACID) [Concomitant]
     Active Substance: ASPIRIN
  13. DETROL LA [Concomitant]
     Active Substance: TOLTERODINE TARTRATE

REACTIONS (32)
  - Malnutrition [None]
  - Dehydration [None]
  - Diarrhoea [None]
  - Fatigue [None]
  - Hypokalaemia [None]
  - Oedema [None]
  - Oedema peripheral [None]
  - Malabsorption [None]
  - Dyspepsia [None]
  - Flatulence [None]
  - Vomiting [None]
  - Constipation [None]
  - Heart sounds abnormal [None]
  - Abdominal pain upper [None]
  - Decreased appetite [None]
  - Urine flow decreased [None]
  - Colitis microscopic [None]
  - Balance disorder [None]
  - Alopecia [None]
  - Nausea [None]
  - Metabolic acidosis [None]
  - Acute kidney injury [None]
  - Weight decreased [None]
  - Coeliac disease [None]
  - Thirst [None]
  - Abdominal pain [None]
  - Dry skin [None]
  - Muscular weakness [None]
  - Mobility decreased [None]
  - Condition aggravated [None]
  - Azotaemia [None]
  - Polyp [None]

NARRATIVE: CASE EVENT DATE: 2012
